FAERS Safety Report 4837903-X (Version None)
Quarter: 2005Q4

REPORT INFORMATION
  Report Type: 
  Country: None (occurrence: None)
  Receive Date: 20051128
  Receipt Date: 20051115
  Transmission Date: 20060501
  Serious: Yes (Hospitalization)
  Sender: FDA-Public Use
  Company Number: US-NOVOPROD-248444

PATIENT
  Age: 66 Year
  Sex: Female
  Weight: 122 kg

DRUGS (18)
  1. NOVOLOG MIX 70/30 [Suspect]
     Indication: INSULIN-REQUIRING TYPE II DIABETES MELLITUS
     Dosage: 65 IU, QD
     Route: 058
     Dates: start: 20051001
  2. OXYGEN [Concomitant]
     Indication: ASTHMA
     Route: 045
     Dates: start: 20051108, end: 20051111
  3. ATENOLOL [Concomitant]
     Indication: HYPERTENSION
     Dates: start: 19870101
  4. ZOLOFT [Concomitant]
     Indication: DEPRESSION
     Dates: start: 20020101
  5. VITAMIN B6 [Concomitant]
     Indication: RASH
     Dates: start: 20030101
  6. VITAMIN D [Concomitant]
     Indication: PROPHYLAXIS
     Dates: start: 20030101
  7. LORATADINE [Concomitant]
     Indication: ASTHMA
     Dates: start: 20050101
  8. ALBUTEROL [Concomitant]
     Indication: ASTHMA
     Route: 055
     Dates: start: 20050101
  9. OXAPROZIN [Concomitant]
     Indication: ARTHRITIS
     Dates: start: 20020101
  10. NASONEX [Concomitant]
     Indication: ASTHMA
     Dates: start: 20050101
  11. OSCAL [Concomitant]
     Indication: PROPHYLAXIS
     Dates: start: 20040101
  12. IBUBUFEN [Concomitant]
     Indication: HEADACHE
     Dates: start: 20000101
  13. POTASSIUM [Concomitant]
     Indication: DIURETIC THERAPY
     Dates: start: 19870101
  14. FURSEMID [Concomitant]
     Indication: DIURETIC THERAPY
     Dates: start: 19870101
  15. LIPITOR                                 /NET/ [Concomitant]
     Indication: BLOOD CHOLESTEROL INCREASED
  16. LEVOXYL [Concomitant]
     Indication: HYPOTHYROIDISM
     Dates: start: 20040101
  17. ZOCOR [Concomitant]
     Indication: HYPERTENSION
     Dates: start: 20051108
  18. CORADINE TAPE [Concomitant]
     Indication: PSORIASIS
     Dates: start: 20040101

REACTIONS (2)
  - CELLULITIS [None]
  - PSORIASIS [None]
